FAERS Safety Report 24152836 (Version 1)
Quarter: 2024Q3

REPORT INFORMATION
  Report Type: Report from Study
  Country: JP (occurrence: JP)
  Receive Date: 20240730
  Receipt Date: 20240730
  Transmission Date: 20241017
  Serious: Yes (Hospitalization)
  Sender: AKEBIA THERAPEUTICS
  Company Number: JP-MTPC-MTPC2024-0002254

PATIENT

DRUGS (11)
  1. VADADUSTAT [Suspect]
     Active Substance: VADADUSTAT
     Indication: Nephrogenic anaemia
     Dosage: 300 MILLIGRAM, QD
     Route: 048
     Dates: start: 20220808, end: 20230411
  2. ENALAPRIL MALEATE [Concomitant]
     Active Substance: ENALAPRIL MALEATE
     Indication: Product used for unknown indication
     Dosage: 5 MILLIGRAM, QD
     Route: 048
     Dates: end: 20230411
  3. BISOPROLOL FUMARATE [Concomitant]
     Active Substance: BISOPROLOL FUMARATE
     Indication: Product used for unknown indication
     Dosage: 1.25 MILLIGRAM, QD
     Route: 048
     Dates: end: 20230411
  4. ATORVASTATIN CALCIUM TRIHYDRATE [Concomitant]
     Active Substance: ATORVASTATIN CALCIUM TRIHYDRATE
     Indication: Product used for unknown indication
     Dosage: 20 MILLIGRAM, QD
     Route: 048
     Dates: end: 20230411
  5. ASPIRIN [Concomitant]
     Active Substance: ASPIRIN
     Indication: Illness
     Dosage: 100 MILLIGRAM, QD
     Route: 048
     Dates: end: 20230411
  6. VONOPRAZAN FUMARATE [Concomitant]
     Active Substance: VONOPRAZAN FUMARATE
     Indication: Illness
     Dosage: 10 MILLIGRAM, QD
     Route: 048
     Dates: end: 20230411
  7. EZETIMIBE [Concomitant]
     Active Substance: EZETIMIBE
     Indication: Illness
     Dosage: 10 MILLIGRAM, QD
     Route: 048
     Dates: end: 20230411
  8. SPIRONOLACTONE [Concomitant]
     Active Substance: SPIRONOLACTONE
     Indication: Illness
     Dosage: 25 MILLIGRAM, QD
     Route: 048
     Dates: end: 20230411
  9. TRICHLORMETHIAZIDE [Concomitant]
     Active Substance: TRICHLORMETHIAZIDE
     Indication: Illness
     Dosage: 2 MILLIGRAM, QD
     Route: 048
     Dates: end: 20230411
  10. MIRABEGRON [Concomitant]
     Active Substance: MIRABEGRON
     Indication: Illness
     Dosage: 25 MILLIGRAM, QD
     Route: 048
     Dates: end: 20230411
  11. RUPAFIN [Concomitant]
     Active Substance: RUPATADINE FUMARATE
     Indication: Illness
     Dosage: 10 MILLIGRAM, QD
     Route: 048
     Dates: end: 20230411

REACTIONS (2)
  - Abdominal pain [Recovering/Resolving]
  - Defaecation disorder [Recovering/Resolving]

NARRATIVE: CASE EVENT DATE: 20230411
